FAERS Safety Report 21254335 (Version 1)
Quarter: 2022Q3

REPORT INFORMATION
  Report Type: Spontaneous
  Country: US (occurrence: None)
  Receive Date: 20220824
  Receipt Date: 20220824
  Transmission Date: 20221026
  Serious: Yes (Life-Threatening, Hospitalization)
  Sender: FDA-Public Use
  Company Number: None

PATIENT
  Age: 77 Year
  Sex: Female
  Weight: 83.25 kg

DRUGS (5)
  1. TENECTEPLASE [Suspect]
     Active Substance: TENECTEPLASE
     Indication: Transient ischaemic attack
     Dosage: FREQUENCY : ONCE;?
     Route: 042
     Dates: start: 20220728, end: 20220728
  2. ATORVASTATIN [Concomitant]
     Active Substance: ATORVASTATIN
  3. EZETIMIBE [Concomitant]
     Active Substance: EZETIMIBE
  4. ATENOLOL [Concomitant]
     Active Substance: ATENOLOL
  5. ASPIRIN [Concomitant]
     Active Substance: ASPIRIN

REACTIONS (13)
  - Hemiparesis [None]
  - Aphasia [None]
  - Condition aggravated [None]
  - Subarachnoid haemorrhage [None]
  - Seizure [None]
  - Eye movement disorder [None]
  - Muscle twitching [None]
  - Trismus [None]
  - Intracranial haematoma [None]
  - Haemorrhage intracranial [None]
  - Coma [None]
  - Blood sodium abnormal [None]
  - Respiratory failure [None]

NARRATIVE: CASE EVENT DATE: 20220728
